FAERS Safety Report 24758736 (Version 1)
Quarter: 2024Q4

REPORT INFORMATION
  Report Type: Spontaneous
  Country: US (occurrence: None)
  Receive Date: 20241220
  Receipt Date: 20241220
  Transmission Date: 20250115
  Serious: Yes (Hospitalization)
  Sender: Public
  Company Number: None

PATIENT
  Age: 70 Year
  Sex: Male
  Weight: 75.8 kg

DRUGS (6)
  1. FLUOROURACIL [Suspect]
     Active Substance: FLUOROURACIL
     Dates: end: 20241118
  2. LEUCOVORIN CALCIUM [Suspect]
     Active Substance: LEUCOVORIN CALCIUM
     Dates: end: 20241118
  3. ELOXATIN [Suspect]
     Active Substance: OXALIPLATIN
     Dates: end: 20241118
  4. ALDACTONE [Concomitant]
     Active Substance: SPIRONOLACTONE
  5. BISOPROLOL [Concomitant]
     Active Substance: BISOPROLOL
  6. ENTRESTO [Concomitant]
     Active Substance: SACUBITRIL\VALSARTAN

REACTIONS (5)
  - Hypotension [None]
  - Malaise [None]
  - Asthenia [None]
  - Drug intolerance [None]
  - Therapy interrupted [None]

NARRATIVE: CASE EVENT DATE: 20241209
